FAERS Safety Report 6646104-4 (Version None)
Quarter: 2010Q1

REPORT INFORMATION
  Report Type: 
  Country: None (occurrence: None)
  Receive Date: 20100323
  Receipt Date: 20100310
  Transmission Date: 20100710
  Serious: Yes (Hospitalization, Other)
  Sender: FDA-Public Use
  Company Number: GB-PFIZER INC-2007064671

PATIENT
  Age: 77 Year
  Sex: Female

DRUGS (6)
  1. SUNITINIB MALATE [Suspect]
     Indication: GASTROINTESTINAL STROMAL TUMOUR
     Dosage: 37.5 MG, 1X/DAY
     Route: 048
     Dates: start: 20070703
  2. AMLODIPINE [Concomitant]
     Route: 048
     Dates: start: 20060626
  3. FUROSEMIDE [Concomitant]
     Route: 048
     Dates: start: 20061015
  4. ATORVASTATIN CALCIUM [Concomitant]
     Route: 048
     Dates: start: 20060614
  5. LANSOPRAZOLE [Concomitant]
     Route: 048
     Dates: start: 20040924
  6. CYCLIZINE [Concomitant]
     Route: 048
     Dates: start: 20070803, end: 20070814

REACTIONS (1)
  - VERTIGO [None]
